FAERS Safety Report 8956159 (Version 1)
Quarter: 2012Q4

REPORT INFORMATION
  Report Type: 
  Country: JP (occurrence: JP)
  Receive Date: 20121210
  Receipt Date: 20121210
  Transmission Date: 20130627
  Serious: Yes (Other)
  Sender: FDA-Public Use
  Company Number: JP-ASTRAZENECA-2012SE90802

PATIENT
  Age: 69 Year
  Sex: Male

DRUGS (5)
  1. PROPOFOL [Suspect]
     Indication: GENERAL ANAESTHESIA
     Route: 042
  2. FENTANYL [Suspect]
     Indication: PROCEDURAL PAIN
     Route: 042
  3. REMIFENTANYL [Suspect]
     Indication: GENERAL ANAESTHESIA
  4. PENTAZOCINE [Suspect]
     Indication: PAIN
  5. ROCURONIUM [Suspect]
     Indication: GENERAL ANAESTHESIA

REACTIONS (2)
  - Syncope [Unknown]
  - Atrioventricular block second degree [Recovered/Resolved]
